FAERS Safety Report 9077217 (Version 2)
Quarter: 2014Q1

REPORT INFORMATION
  Report Type: Spontaneous
  Country: US (occurrence: US)
  Receive Date: 20130130
  Receipt Date: 20140128
  Transmission Date: 20141002
  Serious: Yes (Other)
  Sender: FDA-Public Use
  Company Number: US-BAYER-2013-010754

PATIENT
  Age: 21 Year
  Sex: Female

DRUGS (6)
  1. OCELLA [Suspect]
     Indication: CONTRACEPTION
     Dosage: UNK
     Dates: start: 2009, end: 2011
  2. TAMIFLU [Concomitant]
     Dosage: 75 MG, UNK
     Dates: start: 20110114
  3. AMOXICILLIN [Concomitant]
     Dosage: UNK
     Dates: start: 20110120
  4. STAHIST [Concomitant]
     Dosage: UNK
     Dates: start: 20110122
  5. HYDROXYZINE PAMOATE [Concomitant]
     Dosage: UNK
     Dates: start: 20110128
  6. PREDNISONE [Concomitant]
     Dosage: UNK
     Dates: start: 20110128

REACTIONS (4)
  - Gallbladder disorder [None]
  - Cholecystitis chronic [None]
  - Injury [None]
  - Pain [None]
